FAERS Safety Report 6680783-0 (Version None)
Quarter: 2010Q2

REPORT INFORMATION
  Report Type: 
  Country: None (occurrence: None)
  Receive Date: 20100413
  Receipt Date: 20100413
  Transmission Date: 20101027
  Serious: Yes (Other)
  Sender: FDA-Public Use
  Company Number: None

PATIENT
  Sex: Male
  Weight: 16.3295 kg

DRUGS (2)
  1. SINGULAIR [Suspect]
     Indication: FOOD ALLERGY
     Dosage: 4MG DAILY PO
     Route: 048
     Dates: start: 20100224, end: 20100407
  2. SINGULAIR [Suspect]
     Indication: MULTIPLE ALLERGIES
     Dosage: 4MG DAILY PO
     Route: 048
     Dates: start: 20100224, end: 20100407

REACTIONS (10)
  - ABNORMAL BEHAVIOUR [None]
  - AGGRESSION [None]
  - CRYING [None]
  - FEAR [None]
  - HALLUCINATION, VISUAL [None]
  - HYPERHIDROSIS [None]
  - MOOD SWINGS [None]
  - OPPOSITIONAL DEFIANT DISORDER [None]
  - SCREAMING [None]
  - SLEEP TERROR [None]
